FAERS Safety Report 17813012 (Version 1)
Quarter: 2020Q2

REPORT INFORMATION
  Report Type: Other
  Country: CN (occurrence: CN)
  Receive Date: 20200521
  Receipt Date: 20200521
  Transmission Date: 20200714
  Serious: Yes (Other)
  Sender: FDA-Public Use
  Company Number: CN-ASTELLAS-2020US017325

PATIENT
  Age: 47 Year
  Sex: Female
  Weight: 42 kg

DRUGS (7)
  1. PROGRAF [Suspect]
     Active Substance: TACROLIMUS
     Indication: PROPHYLAXIS AGAINST TRANSPLANT REJECTION
     Route: 048
     Dates: start: 20200426, end: 20200430
  2. PROGRAF [Suspect]
     Active Substance: TACROLIMUS
     Dosage: 0.25 MG, TWICE DAILY
     Route: 048
     Dates: start: 20200507
  3. PROGRAF [Suspect]
     Active Substance: TACROLIMUS
     Dosage: 0.5 MG, TWICE DAILY
     Route: 048
     Dates: start: 20200504, end: 20200507
  4. PROGRAF [Suspect]
     Active Substance: TACROLIMUS
     Route: 048
     Dates: start: 20200430, end: 20200504
  5. VORICONAZOLE. [Concomitant]
     Active Substance: VORICONAZOLE
     Indication: ANTIFUNGAL PROPHYLAXIS
     Dosage: 0.2 G, TWICE DAILY
     Route: 041
     Dates: start: 20200430, end: 20200506
  6. PROGRAF [Suspect]
     Active Substance: TACROLIMUS
     Dosage: UNK DECREASED DOSE
     Route: 065
     Dates: start: 20200511
  7. MYCOPHENOLATE MOFETIL. [Concomitant]
     Active Substance: MYCOPHENOLATE MOFETIL
     Indication: PROPHYLAXIS AGAINST TRANSPLANT REJECTION
     Dosage: 0.5 G, TWICE DAILY
     Route: 065
     Dates: start: 20200424

REACTIONS (3)
  - Lipase increased [Recovering/Resolving]
  - Immunosuppressant drug level increased [Unknown]
  - Amylase increased [Recovering/Resolving]

NARRATIVE: CASE EVENT DATE: 20200501
